FAERS Safety Report 8326379-6 (Version None)
Quarter: 2012Q1

REPORT INFORMATION
  Report Type: 
  Country: None (occurrence: None)
  Receive Date: 20120315
  Receipt Date: 20110302
  Transmission Date: 20120608
  Serious: No
  Sender: FDA-Public Use
  Company Number: PHHY2011US16687

PATIENT
  Age: 47 Year
  Sex: Female
  Weight: 61.7 kg

DRUGS (8)
  1. VITAMIN D [Concomitant]
  2. FOSAMAX [Concomitant]
  3. WELLBUTRIN [Concomitant]
  4. CALCIUM CARBONATE [Concomitant]
  5. GILENYA [Suspect]
     Indication: RELAPSING-REMITTING MULTIPLE SCLEROSIS
     Dosage: 0.5 MG, DAILY, ORAL, 0.5 MG, DAILY, ORAL
     Route: 048
     Dates: start: 20110127
  6. GILENYA [Suspect]
     Indication: RELAPSING-REMITTING MULTIPLE SCLEROSIS
     Dosage: 0.5 MG, DAILY, ORAL, 0.5 MG, DAILY, ORAL
     Route: 048
     Dates: start: 20110227
  7. BACLOFEN [Concomitant]
  8. AMINOPYRIDINE (FAMPRIDINE) [Concomitant]

REACTIONS (1)
  - CHEST DISCOMFORT [None]
